FAERS Safety Report 12827229 (Version 2)
Quarter: 2016Q4

REPORT INFORMATION
  Report Type: Spontaneous
  Country: CN (occurrence: CN)
  Receive Date: 20161006
  Receipt Date: 20161020
  Transmission Date: 20170207
  Serious: Yes (Death, Other)
  Sender: FDA-Public Use
  Company Number: CN-TAKEDA-2016MPI008642

PATIENT

DRUGS (6)
  1. ACYCLOVIR                          /00587301/ [Concomitant]
     Active Substance: ACYCLOVIR
     Dosage: UNK
     Route: 065
  2. CYCLOPHOSPHAMIDE. [Suspect]
     Active Substance: CYCLOPHOSPHAMIDE
     Indication: PLASMA CELL MYELOMA
     Dosage: 200 MG/M2, UNK
     Route: 042
  3. THALIDOMIDE [Suspect]
     Active Substance: THALIDOMIDE
     Indication: PLASMA CELL MYELOMA
     Dosage: 100 MG, QD
     Route: 048
  4. VELCADE [Suspect]
     Active Substance: BORTEZOMIB
     Indication: PLASMA CELL MYELOMA
     Dosage: 1.3 MG/M2, UNK
     Route: 042
  5. DOXORUBICIN [Suspect]
     Active Substance: DOXORUBICIN
     Indication: PLASMA CELL MYELOMA
     Dosage: 10 MG/M2, UNK
     Route: 042
  6. DEXAMETHASONE. [Suspect]
     Active Substance: DEXAMETHASONE
     Indication: PLASMA CELL MYELOMA
     Dosage: 20 MG, UNK
     Route: 042

REACTIONS (12)
  - Infection [Fatal]
  - Diarrhoea [Unknown]
  - Constipation [Unknown]
  - Fatigue [Unknown]
  - Pleural effusion [Unknown]
  - Deep vein thrombosis [Unknown]
  - Neuropathy peripheral [Unknown]
  - Ascites [Unknown]
  - Anaemia [Unknown]
  - Thrombocytopenia [Unknown]
  - Herpes zoster [Unknown]
  - Neutropenia [Unknown]
